FAERS Safety Report 20680891 (Version 1)
Quarter: 2022Q2

REPORT INFORMATION
  Report Type: Spontaneous
  Country: US (occurrence: US)
  Receive Date: 20220406
  Receipt Date: 20220406
  Transmission Date: 20220721
  Serious: Yes (Life-Threatening, Hospitalization, Other)
  Sender: FDA-Public Use
  Company Number: US-NOVARTISPH-NVSC2022US077093

PATIENT
  Age: 76 Year
  Sex: Female

DRUGS (2)
  1. QUETIAPINE [Suspect]
     Active Substance: QUETIAPINE
     Indication: Parkinson^s disease psychosis
     Dosage: LOW DOSE
     Route: 065
  2. DONEPEZIL [Suspect]
     Active Substance: DONEPEZIL
     Indication: Parkinson^s disease psychosis
     Dosage: UNK
     Route: 065

REACTIONS (3)
  - Parkinson^s disease psychosis [Recovering/Resolving]
  - Disease progression [Recovering/Resolving]
  - Drug ineffective for unapproved indication [Unknown]
